FAERS Safety Report 5930479-5 (Version None)
Quarter: 2008Q4

REPORT INFORMATION
  Report Type: 
  Country: None (occurrence: None)
  Receive Date: 20081023
  Receipt Date: 20060828
  Transmission Date: 20090506
  Serious: Yes (Other)
  Sender: FDA-Public Use
  Company Number: 2006AL002619

PATIENT
  Sex: Female

DRUGS (5)
  1. MIRTAZAPINE [Suspect]
     Indication: SLEEP DISORDER
     Dosage: 30 MG; X1; PO
     Route: 048
     Dates: start: 20000701
  2. ASCORBIC ACID [Concomitant]
  3. ACETAMINOPHEN W/ PROPOXYPHENE HCL [Concomitant]
  4. MESTINON [Concomitant]
  5. NIMODIPINE [Concomitant]

REACTIONS (3)
  - MALAISE [None]
  - OFF LABEL USE [None]
  - SLEEP DISORDER [None]
